FAERS Safety Report 9848493 (Version 2)
Quarter: 2014Q2

REPORT INFORMATION
  Report Type: Other
  Country: GB (occurrence: GB)
  Receive Date: 20140128
  Receipt Date: 20140422
  Transmission Date: 20141212
  Serious: Yes (Hospitalization)
  Sender: FDA-Public Use
  Company Number: GB-TARO PHARMACEUTICALS U.S.A., INC-2014SUN00056

PATIENT
  Age: 84 Year
  Sex: Male

DRUGS (14)
  1. WARFARIN [Suspect]
     Indication: ATRIAL FIBRILLATION
     Dosage: AS PER INTERNATIONAL NORMALISED RATIO.
     Route: 048
     Dates: start: 19940101, end: 20140107
  2. CLARITHROMYCIN [Interacting]
     Indication: CHRONIC OBSTRUCTIVE PULMONARY DISEASE
     Dosage: 7 DAY COURSE
     Route: 048
     Dates: start: 20131229, end: 20140105
  3. CLARITHROMYCIN [Interacting]
     Indication: CHRONIC OBSTRUCTIVE PULMONARY DISEASE
  4. ASPIRIN [Concomitant]
     Dosage: 75 MG, QD
     Route: 048
  5. DIGOXIN [Concomitant]
     Dosage: 175 MCG, QD
     Route: 048
  6. DIGOXIN [Concomitant]
     Dosage: 125 ?G, 1 DOSE
     Route: 048
  7. METFORMIN [Concomitant]
     Dosage: 500 MG, BID
     Route: 048
  8. OMEPRAZOLE [Concomitant]
     Dosage: 20 MG, QD
     Route: 048
  9. OMEPRAZOLE [Concomitant]
     Dosage: TAKEN AS NEEDED
     Route: 048
  10. PARACETAMOL [Concomitant]
     Dosage: 1 G, QID
     Route: 048
  11. PREDNISOLONE [Concomitant]
     Indication: CHRONIC OBSTRUCTIVE PULMONARY DISEASE
     Dosage: 30 MG, QD
     Route: 048
     Dates: start: 20131229, end: 20140103
  12. PREDNISOLONE [Concomitant]
     Indication: CHRONIC OBSTRUCTIVE PULMONARY DISEASE
  13. SALBUTAMOL [Concomitant]
     Dosage: UNK UNK, PRN
     Route: 055
  14. SPIRIVA [Concomitant]
     Indication: CHRONIC OBSTRUCTIVE PULMONARY DISEASE
     Dosage: 18 MCG, QD
     Route: 055

REACTIONS (4)
  - Abdominal wall haematoma [Recovering/Resolving]
  - Abdominal distension [Recovering/Resolving]
  - Abdominal pain [Recovering/Resolving]
  - Drug interaction [Unknown]
